FAERS Safety Report 6840362-9 (Version None)
Quarter: 2010Q3

REPORT INFORMATION
  Report Type: 
  Country: None (occurrence: None)
  Receive Date: 20100713
  Receipt Date: 20100713
  Transmission Date: 20110219
  Serious: Yes (Hospitalization)
  Sender: FDA-Public Use
  Company Number: None

PATIENT
  Sex: Female
  Weight: 77.3 kg

DRUGS (12)
  1. DOXORUBICIN HYDROCHLORIDE [Suspect]
     Dosage: 222 MG
     Dates: end: 20100628
  2. TAXOL [Suspect]
     Dosage: 1496 MG
     Dates: end: 20100601
  3. CARBOPLATIN [Suspect]
     Dosage: 2750 MG
     Dates: end: 20100517
  4. CYCLOPHOSPHAMIDE [Suspect]
     Dosage: 2220 MG
     Dates: end: 20100628
  5. NUELASTA [Concomitant]
  6. ATIVAN [Concomitant]
  7. EMEND [Concomitant]
  8. NICODERM CQ [Concomitant]
  9. NICOTINE [Concomitant]
  10. PRILOSEC [Concomitant]
  11. REPLAX [Concomitant]
  12. ZOFRAN [Concomitant]

REACTIONS (6)
  - BODY TEMPERATURE INCREASED [None]
  - EFFUSION [None]
  - HEART RATE INCREASED [None]
  - LOCALISED OEDEMA [None]
  - NEUTROPHIL COUNT DECREASED [None]
  - PAIN [None]
